FAERS Safety Report 9257823 (Version 1)
Quarter: 2013Q1

REPORT INFORMATION
  Report Type: Spontaneous
  Country: US (occurrence: None)
  Receive Date: 20121212
  Receipt Date: 20121212
  Transmission Date: 20140127
  Serious: No
  Sender: FDA-Public Use
  Company Number: 1208USA010006

PATIENT
  Age: 58 Year
  Sex: Male

DRUGS (3)
  1. PEGINTRON (PEGINTERFERON ALFA 2B) POWDER FOR INJECTION [Suspect]
     Indication: HEPATITIS C
     Dosage: UNK
     Dates: start: 20120724
  2. RIBAVIRIN [Suspect]
     Indication: HEPATITIS C
     Dosage: UNK
     Dates: start: 20120724
  3. VICTRELIS (BOCEPREVIR) CAPSULE [Suspect]
     Indication: HEPATITIS C
     Dosage: UNK
     Dates: start: 20120821

REACTIONS (10)
  - Back pain [None]
  - Swelling [None]
  - Pain [None]
  - Drug ineffective [None]
  - Headache [None]
  - Dysgeusia [None]
  - Glossodynia [None]
  - Dry mouth [None]
  - Drug dose omission [None]
  - Disturbance in attention [None]
